FAERS Safety Report 8962334 (Version 1)
Quarter: 2012Q4

REPORT INFORMATION
  Report Type: Spontaneous
  Country: US (occurrence: None)
  Receive Date: 20121211
  Receipt Date: 20121211
  Transmission Date: 20130627
  Serious: Yes (Congenital Anomaly)
  Sender: FDA-Public Use
  Company Number: None

PATIENT
  Sex: Male
  Weight: 3.18 kg

DRUGS (2)
  1. ZOFRAN [Suspect]
     Indication: EMESIS
     Dosage: 2325 hr q 6 pm } 6 hr 40 min
     Route: 042
     Dates: start: 19990110
  2. ZOFRAN [Suspect]
     Route: 042
     Dates: start: 19990110

REACTIONS (4)
  - Pulmonary hypoplasia [None]
  - Congenital anomaly [None]
  - Heart disease congenital [None]
  - Maternal drugs affecting foetus [None]
